FAERS Safety Report 11374243 (Version 3)
Quarter: 2015Q4

REPORT INFORMATION
  Report Type: Spontaneous
  Country: US (occurrence: US)
  Receive Date: 20150812
  Receipt Date: 20151027
  Transmission Date: 20160304
  Serious: Yes (Death, Hospitalization)
  Sender: FDA-Public Use
  Company Number: US-ENDO PHARMACEUTICALS INC.-2015-002214

PATIENT
  Age: 43 Year
  Sex: Male
  Weight: 106.69 kg

DRUGS (2)
  1. TESTOSTERONE. [Suspect]
     Active Substance: TESTOSTERONE
     Indication: ANDROGEN REPLACEMENT THERAPY
     Route: 065
     Dates: start: 201307
  2. FORTESTA [Suspect]
     Active Substance: TESTOSTERONE
     Indication: ANDROGEN REPLACEMENT THERAPY
     Dosage: ^EVERY MORNING, 4 PUMPS TO THIGHS^
     Route: 061
     Dates: start: 20130625, end: 20130924

REACTIONS (2)
  - Pulmonary embolism [Fatal]
  - Thrombosis [Fatal]

NARRATIVE: CASE EVENT DATE: 20130901
